FAERS Safety Report 5714620-5 (Version None)
Quarter: 2008Q2

REPORT INFORMATION
  Report Type: 
  Country: None (occurrence: None)
  Receive Date: 20080423
  Receipt Date: 20080422
  Transmission Date: 20081010
  Serious: Yes (Other)
  Sender: FDA-Public Use
  Company Number: B0515613A

PATIENT
  Age: 9 Year
  Sex: Female
  Weight: 27 kg

DRUGS (5)
  1. RELENZA [Suspect]
     Indication: INFLUENZA
     Dosage: 10MG TWICE PER DAY
     Route: 055
     Dates: start: 20080323, end: 20080328
  2. ASVERIN [Concomitant]
     Indication: INFLUENZA
     Dosage: .51G PER DAY
     Route: 048
     Dates: start: 20080322, end: 20080328
  3. RESTAMIN [Concomitant]
     Indication: INFLUENZA
     Dosage: .39G PER DAY
     Route: 048
     Dates: start: 20080322, end: 20080328
  4. UNKNOWN MEDICATION [Concomitant]
     Indication: INFLUENZA
     Dosage: 300MG PER DAY
     Route: 048
     Dates: start: 20080322, end: 20080328
  5. CALONAL [Concomitant]
     Route: 048

REACTIONS (1)
  - ABNORMAL BEHAVIOUR [None]
